FAERS Safety Report 7667567-1 (Version None)
Quarter: 2011Q3

REPORT INFORMATION
  Report Type: 
  Country: None (occurrence: None)
  Receive Date: 20110806
  Receipt Date: 20110518
  Transmission Date: 20111222
  Serious: No
  Sender: FDA-Public Use
  Company Number: US-ABBOTT-11P-163-0726529-00

PATIENT
  Sex: Female
  Weight: 88.53 kg

DRUGS (4)
  1. NIASPAN [Suspect]
     Indication: BLOOD TRIGLYCERIDES INCREASED
     Dosage: 500MG AT BEDTIME
     Dates: start: 20110513, end: 20110514
  2. CRESTOR [Concomitant]
     Indication: PRODUCT USED FOR UNKNOWN INDICATION
  3. ATENOLOL [Concomitant]
     Indication: PRODUCT USED FOR UNKNOWN INDICATION
  4. ZEGEREID [Concomitant]
     Indication: PRODUCT USED FOR UNKNOWN INDICATION

REACTIONS (3)
  - PRURITUS GENERALISED [None]
  - GENERALISED ERYTHEMA [None]
  - BURNING SENSATION [None]
